FAERS Safety Report 15171385 (Version 5)
Quarter: 2021Q3

REPORT INFORMATION
  Report Type: Spontaneous
  Country: US (occurrence: US)
  Receive Date: 20180720
  Receipt Date: 20210818
  Transmission Date: 20211014
  Serious: No
  Sender: FDA-Public Use
  Company Number: US-ARBOR PHARMACEUTICALS, LLC-US-2018ARB000501

PATIENT
  Age: 11 Year
  Sex: Male

DRUGS (6)
  1. TRIPTODUR [Suspect]
     Active Substance: TRIPTORELIN
  2. TRIPTODUR [Suspect]
     Active Substance: TRIPTORELIN
     Dosage: UNK UNK, SINGLE
     Route: 030
     Dates: start: 201912, end: 201912
  3. TRIPTODUR [Suspect]
     Active Substance: TRIPTORELIN
     Dosage: UNK, SINGLE
     Route: 030
     Dates: start: 20190821, end: 20190821
  4. TRIPTODUR [Suspect]
     Active Substance: TRIPTORELIN
     Dosage: UNK, SINGLE
     Route: 030
     Dates: start: 20210512, end: 20210512
  5. TRIPTODUR [Suspect]
     Active Substance: TRIPTORELIN
  6. TRIPTODUR [Suspect]
     Active Substance: TRIPTORELIN
     Indication: PRODUCT USED FOR UNKNOWN INDICATION
     Dosage: 22.5 MG, SINGLE
     Route: 030
     Dates: start: 20180222, end: 20180222

REACTIONS (9)
  - Injection site extravasation [Unknown]
  - Incorrect dose administered [Unknown]
  - Therapeutic product effect decreased [Unknown]
  - Spontaneous penile erection [Recovered/Resolved]
  - Emotional disorder [Unknown]
  - Blood testosterone abnormal [Unknown]
  - Growth accelerated [Not Recovered/Not Resolved]
  - Aggression [Unknown]
  - Acne [Unknown]

NARRATIVE: CASE EVENT DATE: 2018
